FAERS Safety Report 14893580 (Version 1)
Quarter: 2018Q2

REPORT INFORMATION
  Report Type: Spontaneous
  Country: CA (occurrence: CA)
  Receive Date: 20180514
  Receipt Date: 20180514
  Transmission Date: 20180711
  Serious: Yes (Life-Threatening, Other)
  Sender: FDA-Public Use
  Company Number: CA-SHIRE-CA201817500

PATIENT

DRUGS (1)
  1. INTUNIV [Suspect]
     Active Substance: GUANFACINE HYDROCHLORIDE
     Indication: IMPULSIVE BEHAVIOUR
     Dosage: 2 MG, 1X/DAY:QD
     Route: 048

REACTIONS (10)
  - Mental impairment [Unknown]
  - Aggression [Unknown]
  - Mood swings [Unknown]
  - Hostility [Unknown]
  - Affect lability [Unknown]
  - Negativism [Unknown]
  - Depressed mood [Unknown]
  - Persecutory delusion [Unknown]
  - Delusion [Unknown]
  - Suicidal ideation [Unknown]
